FAERS Safety Report 24293701 (Version 1)
Quarter: 2024Q3

REPORT INFORMATION
  Report Type: Spontaneous
  Country: US (occurrence: None)
  Receive Date: 20240906
  Receipt Date: 20240906
  Transmission Date: 20241017
  Serious: No
  Sender: DOMPE FARMACEUTICI
  Company Number: US-FARMAPROD-202308-202402-0548

PATIENT
  Age: 78 Year
  Sex: Female
  Weight: 87.54 kg

DRUGS (14)
  1. OXERVATE [Suspect]
     Active Substance: CENEGERMIN-BKBJ
     Indication: Neurotrophic keratopathy
     Route: 047
     Dates: start: 20240214
  2. OXERVATE [Suspect]
     Active Substance: CENEGERMIN-BKBJ
  3. SUCRALFATE [Concomitant]
     Active Substance: SUCRALFATE
  4. PANTOPRAZOLE SODIUM [Concomitant]
     Active Substance: PANTOPRAZOLE SODIUM
  5. VITAMINS [Concomitant]
     Active Substance: VITAMINS
  6. XOPENEX HFA [Concomitant]
     Active Substance: LEVALBUTEROL TARTRATE
     Dosage: HYDROFLUOROALKANE, AEROSOL WITH ADAPTER
  7. ENBREL [Concomitant]
     Active Substance: ETANERCEPT
     Dosage: 50MG/ML(1) CARTRIDGE
  8. ESCITALOPRAM OXALATE [Concomitant]
     Active Substance: ESCITALOPRAM OXALATE
  9. TRELEGY ELLIPTA [Concomitant]
     Active Substance: FLUTICASONE FUROATE\UMECLIDINIUM BROMIDE\VILANTEROL TRIFENATATE
     Dosage: 200-62.5 BLISTER WITH DEVICE
  10. NEXIUM [Concomitant]
     Active Substance: ESOMEPRAZOLE MAGNESIUM
  11. MELOXICAM [Concomitant]
     Active Substance: MELOXICAM
  12. MONTELUKAST SODIUM [Concomitant]
     Active Substance: MONTELUKAST\MONTELUKAST SODIUM
  13. CLONAZEPAM [Concomitant]
     Active Substance: CLONAZEPAM
  14. SPIRONOLACTONE [Concomitant]
     Active Substance: SPIRONOLACTONE

REACTIONS (7)
  - Abnormal sensation in eye [Unknown]
  - Eye pruritus [Unknown]
  - Eye pain [Not Recovered/Not Resolved]
  - Eye irritation [Not Recovered/Not Resolved]
  - Ocular hyperaemia [Unknown]
  - Eye swelling [Unknown]
  - Off label use [Unknown]

NARRATIVE: CASE EVENT DATE: 20240215
